FAERS Safety Report 5087801-4 (Version None)
Quarter: 2006Q3

REPORT INFORMATION
  Report Type: 
  Country: None (occurrence: None)
  Receive Date: 20060824
  Receipt Date: 20060818
  Transmission Date: 20061208
  Serious: Yes (Hospitalization)
  Sender: FDA-Public Use
  Company Number: US-BRISTOL-MYERS SQUIBB COMPANY-13482708

PATIENT
  Age: 78 Year
  Sex: Male
  Weight: 88 kg

DRUGS (14)
  1. ERBITUX [Suspect]
     Indication: TONGUE NEOPLASM MALIGNANT STAGE UNSPECIFIED
     Route: 042
     Dates: start: 20060701, end: 20060701
  2. RADIATION THERAPY [Concomitant]
  3. BUSPAR [Concomitant]
  4. LIPITOR [Concomitant]
  5. FLONASE [Concomitant]
  6. ACTONEL [Concomitant]
  7. PROTONIX [Concomitant]
  8. LUNESTA [Concomitant]
  9. ASPIRIN [Concomitant]
  10. ALLEGRA [Concomitant]
  11. ASCORBIC ACID [Concomitant]
  12. CENTRUM SILVER [Concomitant]
  13. CALTRATE [Concomitant]
  14. TYLENOL W/ CODEINE [Concomitant]

REACTIONS (5)
  - DERMATITIS ACNEIFORM [None]
  - ERYTHEMA [None]
  - FACE OEDEMA [None]
  - OPEN WOUND [None]
  - STAPHYLOCOCCAL INFECTION [None]
